FAERS Safety Report 25305497 (Version 2)
Quarter: 2025Q2

REPORT INFORMATION
  Report Type: Report from Study
  Country: US (occurrence: US)
  Receive Date: 20250513
  Receipt Date: 20250621
  Transmission Date: 20250717
  Serious: Yes (Hospitalization, Other)
  Sender: SANOFI AVENTIS
  Company Number: US-SANOFI-02504481

PATIENT
  Age: 57 Year
  Sex: Male
  Weight: 76.19 kg

DRUGS (24)
  1. AGALSIDASE BETA [Suspect]
     Active Substance: AGALSIDASE BETA
     Indication: Fabry^s disease
     Dosage: 80 (UNITS UNSPECIFIED), QOW
     Route: 042
     Dates: start: 200607
  2. SODIUM CHLORIDE [Concomitant]
     Active Substance: SODIUM CHLORIDE
  3. CRESTOR [Concomitant]
     Active Substance: ROSUVASTATIN CALCIUM
  4. PROLIA [Concomitant]
     Active Substance: DENOSUMAB
  5. AMOXICILLIN [Concomitant]
     Active Substance: AMOXICILLIN
  6. PROGRAF [Concomitant]
     Active Substance: TACROLIMUS
  7. FAMOTIDINE [Concomitant]
     Active Substance: FAMOTIDINE
  8. TYLENOL EXTRA STRENGTH [Concomitant]
     Active Substance: ACETAMINOPHEN
  9. ELIQUIS [Concomitant]
     Active Substance: APIXABAN
  10. SODIUM CHLORIDE [Concomitant]
     Active Substance: SODIUM CHLORIDE
  11. PREDNISONE [Concomitant]
     Active Substance: PREDNISONE
  12. ALBUTEROL SULFATE [Concomitant]
     Active Substance: ALBUTEROL SULFATE
  13. MESALAMINE [Concomitant]
     Active Substance: MESALAMINE
  14. HEPARIN [Concomitant]
     Active Substance: HEPARIN SODIUM
  15. STERILE WATER [Concomitant]
     Active Substance: WATER
  16. LIDOCAINE [Concomitant]
     Active Substance: LIDOCAINE
  17. DIPHENHYDRAMINE HYDROCHLORIDE [Concomitant]
     Active Substance: DIPHENHYDRAMINE HYDROCHLORIDE
  18. LORATADINE D [Concomitant]
     Active Substance: LORATADINE\PSEUDOEPHEDRINE SULFATE
  19. GABAPENTIN [Concomitant]
     Active Substance: GABAPENTIN
  20. EPINEPHRINE [Concomitant]
     Active Substance: EPINEPHRINE
  21. METOPROLOL TARTRATE [Concomitant]
     Active Substance: METOPROLOL TARTRATE
  22. MYCOPHENOLIC ACID [Concomitant]
     Active Substance: MYCOPHENOLIC ACID
  23. VITAMIN D3 [Concomitant]
     Active Substance: CHOLECALCIFEROL
  24. CREON [Concomitant]
     Active Substance: PANCRELIPASE AMYLASE\PANCRELIPASE LIPASE\PANCRELIPASE PROTEASE

REACTIONS (3)
  - Streptococcal infection [Recovering/Resolving]
  - Spinal cord infection [Recovering/Resolving]
  - Staphylococcal infection [Unknown]

NARRATIVE: CASE EVENT DATE: 20250101
